FAERS Safety Report 10065469 (Version 2)
Quarter: 2014Q2

REPORT INFORMATION
  Report Type: Report from Study
  Country: US (occurrence: US)
  Receive Date: 20140408
  Receipt Date: 20140410
  Transmission Date: 20141212
  Serious: Yes (Hospitalization)
  Sender: FDA-Public Use
  Company Number: PHEH2014US006733

PATIENT
  Age: 13 Year
  Sex: Female

DRUGS (1)
  1. TOBI [Suspect]
     Indication: CYSTIC FIBROSIS
     Dosage: 1 DF (300 MG, PER 5 ML), BID
     Route: 055

REACTIONS (1)
  - Pseudomonas infection [Not Recovered/Not Resolved]
